FAERS Safety Report 8532200-3 (Version None)
Quarter: 2012Q3

REPORT INFORMATION
  Report Type: 
  Country: None (occurrence: None)
  Receive Date: 20120723
  Receipt Date: 20120719
  Transmission Date: 20120928
  Serious: Yes (Other)
  Sender: FDA-Public Use
  Company Number: FR-ROCHE-1090435

PATIENT
  Sex: Male
  Weight: 84 kg

DRUGS (5)
  1. MABTHERA [Suspect]
     Indication: MANTLE CELL LYMPHOMA
     Route: 041
     Dates: start: 20110922, end: 20110922
  2. CARMUSTINE [Concomitant]
     Dates: start: 20110923, end: 20110923
  3. ETOPOSIDE [Concomitant]
     Dates: start: 20110924, end: 20110927
  4. CYTARABINE [Concomitant]
     Dates: start: 20110924, end: 20110927
  5. MELPHALAN HYDROCHLORIDE [Concomitant]
     Dates: start: 20110928, end: 20110928

REACTIONS (1)
  - NEUROENDOCRINE CARCINOMA [None]
